FAERS Safety Report 9478064 (Version 2)
Quarter: 2013Q3

REPORT INFORMATION
  Report Type: Report from Study
  Country: HU (occurrence: HU)
  Receive Date: 20130827
  Receipt Date: 20130827
  Transmission Date: 20140515
  Serious: Yes (Hospitalization)
  Sender: FDA-Public Use
  Company Number: PHHO2011HU13183

PATIENT
  Age: 55 Year
  Sex: Female
  Weight: 72 kg

DRUGS (7)
  1. PLACEBO [Suspect]
     Indication: CORONARY ARTERY DISEASE
     Dosage: UNK
     Route: 048
     Dates: start: 20110119
  2. ALISKIREN [Suspect]
     Indication: CORONARY ARTERY DISEASE
     Dosage: 150 MG, UNK
     Route: 048
     Dates: start: 20110119, end: 20110125
  3. ASPIRIN PROTECT [Concomitant]
     Indication: MYOCARDIAL ISCHAEMIA
     Dosage: 100 MG, QD
     Route: 048
     Dates: start: 20101103
  4. RAMACE [Concomitant]
     Indication: HYPERTENSION
     Dosage: 5/25 MG, QD
     Route: 048
     Dates: start: 2010
  5. RAMACE [Concomitant]
     Dosage: 5 MG, BID
     Route: 048
     Dates: start: 2010
  6. METOPROLOL [Concomitant]
     Indication: HYPERTENSION
     Dosage: 50 MG, QD
     Route: 048
     Dates: start: 2010
  7. TENAXUM [Concomitant]
     Indication: HYPERTENSION
     Dosage: 1 MG, QD
     Route: 048
     Dates: start: 2010

REACTIONS (1)
  - Pyrexia [Recovered/Resolved]
